FAERS Safety Report 7347667-6 (Version None)
Quarter: 2011Q1

REPORT INFORMATION
  Report Type: 
  Country: None (occurrence: None)
  Receive Date: 20110311
  Receipt Date: 20110304
  Transmission Date: 20110831
  Serious: Yes (Hospitalization)
  Sender: FDA-Public Use
  Company Number: A0916757A

PATIENT
  Age: 63 Year
  Sex: Female

DRUGS (3)
  1. KEPPRA [Concomitant]
  2. TYKERB [Suspect]
     Indication: BREAST CANCER
     Dosage: 6TAB PER DAY
     Route: 048
     Dates: start: 20100401, end: 20100601
  3. SIMVASTATIN [Concomitant]

REACTIONS (4)
  - DIARRHOEA [None]
  - NAUSEA [None]
  - ABDOMINAL DISCOMFORT [None]
  - HEPATOTOXICITY [None]
